FAERS Safety Report 19169544 (Version 1)
Quarter: 2021Q2

REPORT INFORMATION
  Report Type: Spontaneous
  Country: US (occurrence: US)
  Receive Date: 20210422
  Receipt Date: 20210422
  Transmission Date: 20210717
  Serious: No
  Sender: FDA-Public Use
  Company Number: US-PFIZER INC-2021194433

PATIENT
  Age: 92 Year
  Sex: Female

DRUGS (1)
  1. COLESTIPOL HCL [Suspect]
     Active Substance: COLESTIPOL HYDROCHLORIDE
     Dosage: 2 DF
     Route: 048

REACTIONS (2)
  - Throat irritation [Unknown]
  - Product solubility abnormal [Unknown]
